FAERS Safety Report 4421716-7 (Version None)
Quarter: 2004Q3

REPORT INFORMATION
  Report Type: 
  Country: None (occurrence: None)
  Receive Date: 20040804
  Receipt Date: 20040727
  Transmission Date: 20050211
  Serious: Yes (Death)
  Sender: FDA-Public Use
  Company Number: 163-20785-04070031

PATIENT
  Age: 79 Year
  Sex: Female

DRUGS (1)
  1. THALOMID [Suspect]
     Indication: MULTIPLE MYELOMA
     Dosage: 100 MG, DAIKLY, ORAL
     Route: 048
     Dates: start: 20020729, end: 20030101

REACTIONS (5)
  - ATRIAL FIBRILLATION [None]
  - MALIGNANT NEOPLASM PROGRESSION [None]
  - MALNUTRITION [None]
  - MULTIPLE MYELOMA [None]
  - PNEUMONIA ASPIRATION [None]
